FAERS Safety Report 7313196-9 (Version None)
Quarter: 2011Q1

REPORT INFORMATION
  Report Type: 
  Country: None (occurrence: None)
  Receive Date: 20110215
  Receipt Date: 20110215
  Transmission Date: 20110831
  Serious: No
  Sender: FDA-Public Use
  Company Number: None

PATIENT

DRUGS (1)
  1. NIASPAN [Suspect]
     Dates: start: 20100907, end: 20100913

REACTIONS (3)
  - DRY SKIN [None]
  - JOINT SWELLING [None]
  - PRURITUS [None]
